FAERS Safety Report 6017389-2 (Version None)
Quarter: 2008Q4

REPORT INFORMATION
  Report Type: 
  Country: None (occurrence: None)
  Receive Date: 20081223
  Receipt Date: 20081212
  Transmission Date: 20090506
  Serious: Yes (Other)
  Sender: FDA-Public Use
  Company Number: PHHY2008RU31921

PATIENT
  Age: 43 Year
  Sex: Female

DRUGS (4)
  1. RECLAST [Suspect]
     Indication: OSTEOPOROSIS
     Dosage: UNK
     Dates: start: 20081129
  2. CALCIUM D3 NYCOMED [Concomitant]
     Dosage: 500 MG / DAY
  3. LOGEST [Concomitant]
     Indication: MENOPAUSE
     Dosage: 1 PILL/DAY
     Dates: start: 20081130
  4. YARINA [Concomitant]
     Dosage: 1 PILL/DAY

REACTIONS (5)
  - ALANINE AMINOTRANSFERASE INCREASED [None]
  - ASPARTATE AMINOTRANSFERASE INCREASED [None]
  - BLOOD BILIRUBIN INCREASED [None]
  - JAUNDICE [None]
  - PYREXIA [None]
